FAERS Safety Report 9156887 (Version 1)
Quarter: 2013Q1

REPORT INFORMATION
  Report Type: Spontaneous
  Country: US (occurrence: None)
  Receive Date: 20130212
  Receipt Date: 20130212
  Transmission Date: 20140127
  Serious: Yes (Hospitalization)
  Sender: FDA-Public Use
  Company Number: DKLU1088770

PATIENT
  Age: 10 Year
  Sex: Female

DRUGS (1)
  1. SABRIL [Suspect]
     Indication: STATUS EPILEPTICUS
     Dates: start: 20100128

REACTIONS (3)
  - Mental status changes [None]
  - Somnolence [None]
  - Convulsion [None]
